FAERS Safety Report 23185092 (Version 1)
Quarter: 2023Q4

REPORT INFORMATION
  Report Type: Spontaneous
  Country: US (occurrence: US)
  Receive Date: 20231115
  Receipt Date: 20231115
  Transmission Date: 20240109
  Serious: No
  Sender: FDA-Public Use
  Company Number: US-ELI_LILLY_AND_COMPANY-US202311006237

PATIENT
  Weight: 230 kg

DRUGS (1)
  1. BAQSIMI [Suspect]
     Active Substance: GLUCAGON
     Indication: Blood glucose decreased
     Dosage: 3 MG, UNKNOWN
     Route: 065

REACTIONS (7)
  - Rhinalgia [Unknown]
  - Nasal irrigation [Unknown]
  - Sinus disorder [Unknown]
  - Swelling face [Unknown]
  - Migraine [Unknown]
  - Vertigo [Unknown]
  - Nasal discomfort [Unknown]
